FAERS Safety Report 12071552 (Version 1)
Quarter: 2016Q1

REPORT INFORMATION
  Report Type: Report from Study
  Country: US (occurrence: US)
  Receive Date: 20160212
  Receipt Date: 20160212
  Transmission Date: 20160526
  Serious: Yes (Death, Other)
  Sender: FDA-Public Use
  Company Number: US-ROCHE-1706410

PATIENT

DRUGS (8)
  1. MYCOPHENOLATE MOFETIL. [Suspect]
     Active Substance: MYCOPHENOLATE MOFETIL
     Indication: SYSTEMIC LUPUS ERYTHEMATOSUS
     Route: 065
  2. TABALUMAB [Suspect]
     Active Substance: TABALUMAB
     Indication: SYSTEMIC LUPUS ERYTHEMATOSUS
     Route: 058
  3. AZATHIOPRIN [Suspect]
     Active Substance: AZATHIOPRINE
     Indication: SYSTEMIC LUPUS ERYTHEMATOSUS
     Route: 065
  4. TABALUMAB [Suspect]
     Active Substance: TABALUMAB
     Indication: SYSTEMIC LUPUS ERYTHEMATOSUS
     Route: 058
  5. PREDNISONE. [Suspect]
     Active Substance: PREDNISONE
     Indication: SYSTEMIC LUPUS ERYTHEMATOSUS
     Route: 065
  6. TABALUMAB [Suspect]
     Active Substance: TABALUMAB
     Route: 058
  7. METHOTREXATE [Suspect]
     Active Substance: METHOTREXATE
     Indication: SYSTEMIC LUPUS ERYTHEMATOSUS
     Route: 065
  8. TABALUMAB [Suspect]
     Active Substance: TABALUMAB
     Route: 058

REACTIONS (8)
  - Basal cell carcinoma [Unknown]
  - Infection [Unknown]
  - Papillary thyroid cancer [Unknown]
  - Breast cancer [Unknown]
  - Lung adenocarcinoma [Unknown]
  - Septic shock [Fatal]
  - Squamous cell carcinoma of the vagina [Fatal]
  - Mycosis fungoides [Unknown]
